FAERS Safety Report 25467081 (Version 1)
Quarter: 2025Q2

REPORT INFORMATION
  Report Type: Spontaneous
  Country: US (occurrence: US)
  Receive Date: 20250623
  Receipt Date: 20250623
  Transmission Date: 20250716
  Serious: No
  Sender: ABBVIE
  Company Number: US-ABBVIE-6337636

PATIENT
  Age: 37 Year

DRUGS (1)
  1. CREON [Suspect]
     Active Substance: PANCRELIPASE AMYLASE\PANCRELIPASE LIPASE\PANCRELIPASE PROTEASE
     Indication: Product used for unknown indication
     Route: 048
     Dates: start: 2022

REACTIONS (4)
  - Blood iron decreased [Unknown]
  - Vitamin D decreased [Unknown]
  - Malabsorption [Unknown]
  - Iron deficiency [Unknown]

NARRATIVE: CASE EVENT DATE: 20250101
